FAERS Safety Report 18084622 (Version 2)
Quarter: 2020Q3

REPORT INFORMATION
  Report Type: Spontaneous
  Country: CN (occurrence: CN)
  Receive Date: 20200728
  Receipt Date: 20200831
  Transmission Date: 20201103
  Serious: Yes (Congenital Anomaly)
  Sender: FDA-Public Use
  Company Number: NVSC2020CN211066

PATIENT
  Sex: Female

DRUGS (3)
  1. DEXAMETHASONE. [Suspect]
     Active Substance: DEXAMETHASONE
     Indication: FOETAL EXPOSURE DURING PREGNANCY
     Dosage: MATERNAL DOSE: 3 TO 7.5 MG, QD
     Route: 064
     Dates: start: 20170222
  2. HYDROXYCHLOROQUINE [Suspect]
     Active Substance: HYDROXYCHLOROQUINE
     Indication: FOETAL EXPOSURE DURING PREGNANCY
     Dosage: MATERNAL DOSE: 400 MG, QD
     Route: 064
     Dates: start: 20161116
  3. DEXAMETHASONE. [Suspect]
     Active Substance: DEXAMETHASONE
     Dosage: MATERNAL DOSE: 3.75 MG, QD
     Route: 064
     Dates: start: 20170301

REACTIONS (2)
  - Foetal exposure during pregnancy [Unknown]
  - Heart block congenital [Unknown]
